FAERS Safety Report 14129114 (Version 1)
Quarter: 2017Q4

REPORT INFORMATION
  Report Type: Report from Study
  Country: CH (occurrence: CH)
  Receive Date: 20171026
  Receipt Date: 20171026
  Transmission Date: 20180321
  Serious: Yes (Other)
  Sender: FDA-Public Use
  Company Number: CH-BAYER-2017-137218

PATIENT
  Weight: 117.5 kg

DRUGS (24)
  1. ACETYLSALICYLIC ACID({=100 MG) [Concomitant]
     Active Substance: ASPIRIN
     Dosage: 100 MG, QD WHEN NOT UNDER DIALYSIS;
     Route: 048
     Dates: start: 20170407
  2. GLUCOSE [Concomitant]
     Active Substance: DEXTROSE
     Dosage: 10 EVERY WEEK; MI IN RESERVE IF CRAMPING+++, MEDICATION UNDER DIALYSIS;
     Route: 042
     Dates: start: 20161104
  3. TAVEGYL [Concomitant]
     Active Substance: CLEMASTINE FUMARATE
     Dosage: 1 MG, OW IN RESERVE 2X, MEDICATION UNDER DIALYSIS;
     Route: 042
     Dates: start: 20140111
  4. ASPIRIN CARDIO 100 MG [Suspect]
     Active Substance: ASPIRIN
     Dosage: 100 MG, QD
     Route: 048
  5. AMLODIPINE [Concomitant]
     Active Substance: AMLODIPINE BESYLATE
     Dosage: 5 MG, QD IN THE EVENING;
     Route: 048
  6. FERINJECT [Concomitant]
     Active Substance: FERRIC CARBOXYMALTOSE
     Dosage: 100 MG, 1 VIAL OW, MEDICATION UNDER DIALYSIS;
     Route: 042
     Dates: start: 20170522
  7. PREDNISON [Concomitant]
     Active Substance: PREDNISONE
  8. NEBIDO [Suspect]
     Active Substance: TESTOSTERONE UNDECANOATE
     Indication: SECONDARY HYPOGONADISM
     Dosage: 250 MG, EVERY 10 TO 15 DAYS
     Route: 030
     Dates: start: 2007, end: 201403
  9. BECOZYM FORTE [Concomitant]
     Dosage: 1 DF, OW, MEDICATION UNDER DIALYSIS;
     Dates: start: 201603
  10. PARACETAMOL [Concomitant]
     Active Substance: ACETAMINOPHEN
     Dosage: 1000 G, OW IN RESERVE, MEDICATION UNDER DIALYSIS;
     Route: 042
     Dates: start: 20121217
  11. MOTILIUM [Concomitant]
     Active Substance: DOMPERIDONE
     Dosage: 10 MG, QD IN THE EVENING;
     Route: 048
  12. LACTOBACILLUS ACID [Concomitant]
     Dosage: 2 MG OW + 2MG AS I.V. IN RESERVE, MEDICATION UNDER DIALYSIS;
     Route: 042
     Dates: start: 20170722
  13. VITAMIN D3 [Concomitant]
     Active Substance: CHOLECALCIFEROL
     Dosage: 30 GTT, OW, ALWAYS ON WEDNESDAY, MEDICATION UNDER DIALYSIS;
     Route: 048
     Dates: start: 20161109
  14. TESTOVIRON DEPOT [Suspect]
     Active Substance: TESTOSTERONE ENANTHATE
     Indication: SECONDARY HYPOGONADISM
     Dosage: 250 MG, EVERY 2-3 WEEKS;
     Route: 030
     Dates: start: 201403
  15. FOLIC ACID. [Concomitant]
     Active Substance: FOLIC ACID
     Dosage: 5 MG, BIW, 1 CAPSULE EVERY WEEK, MEDICATION UNDER DIALYSIS;
     Route: 048
     Dates: start: 20151201
  16. NACL [Concomitant]
     Active Substance: SODIUM CHLORIDE
     Dosage: 10 ML, 10ML OW IN RESERVE WHEN CRAMPING, MEDICATION UNDER DIALYSIS;;
     Route: 042
     Dates: start: 20140215
  17. CICLOSPORIN [Concomitant]
     Active Substance: CYCLOSPORINE
  18. CALCIUM ACETATE. [Concomitant]
     Active Substance: CALCIUM ACETATE
     Dosage: 2 DF, TID
     Route: 048
  19. EMLA [Concomitant]
     Active Substance: LIDOCAINE\PRILOCAINE
     Dosage: 1 DF, 5IW, BEFORE EVERY DIALYSIS;
  20. MAGNESIUM ASPARTATE [Concomitant]
     Active Substance: MAGNESIUM ASPARTATE
     Dosage: 1 DF, OM, IN RESERVE;
     Route: 048
  21. NEXIUM [Concomitant]
     Active Substance: ESOMEPRAZOLE MAGNESIUM
     Dosage: 20 MG, QD IN THE EVENING;
     Route: 048
  22. BENERVA [Concomitant]
     Active Substance: THIAMINE
     Dosage: 300 MG, OW, MEDICATION UNDER DIALYSIS;
     Route: 048
     Dates: start: 20151203
  23. REDOXON RETARD [Concomitant]
     Dosage: 500 MG, OW, ALWAYS ON THURSDAY, MEDICATION UNDER DIALYSIS;
     Route: 048
     Dates: start: 20151203
  24. RITUXIMAB. [Concomitant]
     Active Substance: RITUXIMAB

REACTIONS (25)
  - Renal transplant failure [None]
  - Pericardial haemorrhage [None]
  - Prurigo [None]
  - Adjustment disorder with mixed anxiety and depressed mood [None]
  - Arteriovenous fistula thrombosis [None]
  - Epicondylitis [None]
  - Arteriovenous fistula thrombosis [None]
  - Cardiac tamponade [None]
  - Device related infection [None]
  - Prinzmetal angina [None]
  - Renal transplant [None]
  - Hyperparathyroidism secondary [None]
  - Cardiac flutter [None]
  - Hyperphosphataemia [None]
  - Vascular stent thrombosis [None]
  - End stage renal disease [None]
  - Viral pericarditis [None]
  - Prinzmetal angina [None]
  - Sleep apnoea syndrome [None]
  - Restless legs syndrome [None]
  - Procedural complication [None]
  - Periarthritis [None]
  - Paralysis [None]
  - Superior vena cava stenosis [None]
  - Dermo-hypodermitis [None]

NARRATIVE: CASE EVENT DATE: 2010
